FAERS Safety Report 6725817-X (Version None)
Quarter: 2010Q2

REPORT INFORMATION
  Report Type: 
  Country: None (occurrence: None)
  Receive Date: 20100514
  Receipt Date: 20100503
  Transmission Date: 20101027
  Serious: Yes (Other)
  Sender: FDA-Public Use
  Company Number: PHHY2010DE19588

PATIENT
  Sex: Female
  Weight: 58 kg

DRUGS (2)
  1. FEMARA [Suspect]
     Indication: BREAST CANCER
     Dosage: 2.5 MG, DAILY
     Route: 048
     Dates: start: 20060405, end: 20100210
  2. CALCIUM WITH VITAMIN D [Concomitant]
     Dosage: UNK
     Dates: start: 20060404

REACTIONS (2)
  - BONE PAIN [None]
  - OSTEOCHONDROSIS [None]
